FAERS Safety Report 24803421 (Version 1)
Quarter: 2025Q1

REPORT INFORMATION
  Report Type: Spontaneous
  Country: CA (occurrence: CA)
  Receive Date: 20250103
  Receipt Date: 20250103
  Transmission Date: 20250409
  Serious: Yes (Other)
  Sender: TEVA
  Company Number: CA-TEVA-VS-3282085

PATIENT
  Age: 35 Year
  Sex: Male

DRUGS (14)
  1. ZOPICLONE [Suspect]
     Active Substance: ZOPICLONE
     Indication: Poor quality sleep
     Route: 065
  2. BENZTROPINE [Interacting]
     Active Substance: BENZTROPINE
     Indication: Dystonia
     Route: 065
  3. OXAZEPAM [Interacting]
     Active Substance: OXAZEPAM
     Indication: Poor quality sleep
     Route: 065
  4. TEMAZEPAM [Interacting]
     Active Substance: TEMAZEPAM
     Indication: Poor quality sleep
     Route: 065
  5. SERTRALINE [Concomitant]
     Active Substance: SERTRALINE HYDROCHLORIDE
     Indication: Product used for unknown indication
  6. ARIPIPRAZOLE [Interacting]
     Active Substance: ARIPIPRAZOLE
     Indication: Psychotic disorder
     Route: 030
  7. ARIPIPRAZOLE [Interacting]
     Active Substance: ARIPIPRAZOLE
     Indication: Psychotic disorder
     Route: 048
  8. LORAZEPAM [Concomitant]
     Active Substance: LORAZEPAM
     Indication: Product used for unknown indication
     Route: 065
  9. LIBRIUM [Interacting]
     Active Substance: CHLORDIAZEPOXIDE HYDROCHLORIDE
     Indication: Poor quality sleep
     Route: 065
  10. CLONAZEPAM [Interacting]
     Active Substance: CLONAZEPAM
     Indication: Poor quality sleep
     Route: 065
  11. LEVOMEPROMAZINE [Interacting]
     Active Substance: LEVOMEPROMAZINE
     Indication: Poor quality sleep
     Route: 065
  12. VORTIOXETINE [Concomitant]
     Active Substance: VORTIOXETINE
     Indication: Product used for unknown indication
  13. QUETIAPINE [Suspect]
     Active Substance: QUETIAPINE
     Indication: Bipolar I disorder
     Route: 065
  14. LITHIUM CARBONATE [Interacting]
     Active Substance: LITHIUM CARBONATE
     Indication: Product used for unknown indication
     Route: 048

REACTIONS (5)
  - Dystonia [Unknown]
  - Dystonic tremor [Unknown]
  - Drug interaction [Unknown]
  - Restlessness [Unknown]
  - Off label use [Unknown]
